FAERS Safety Report 7304335-4 (Version None)
Quarter: 2011Q1

REPORT INFORMATION
  Report Type: 
  Country: None (occurrence: None)
  Receive Date: 20110221
  Receipt Date: 20110208
  Transmission Date: 20110831
  Serious: Yes (Hospitalization)
  Sender: FDA-Public Use
  Company Number: PHHY2011ES10138

PATIENT
  Age: 78 Year
  Sex: Female

DRUGS (6)
  1. ALDACTONE [Interacting]
     Dosage: UNK
     Dates: start: 20100101, end: 20110101
  2. PRANDIN [Concomitant]
     Dosage: 1 MG, UNK
  3. LEVOTHROID [Concomitant]
     Dosage: 50 UNK, UNK
  4. DAFIRO [Suspect]
     Indication: HYPERTENSION
     Dosage: VALSARTAN 160MG AND AMLODIPINE 10MG
     Dates: start: 20050101, end: 20110101
  5. METFORMIN [Concomitant]
  6. CARDURA [Concomitant]

REACTIONS (4)
  - HYPERKALAEMIA [None]
  - ATRIOVENTRICULAR BLOCK [None]
  - ELECTROCARDIOGRAM QRS COMPLEX PROLONGED [None]
  - DRUG INTERACTION [None]
